FAERS Safety Report 6841969-5 (Version None)
Quarter: 2010Q3

REPORT INFORMATION
  Report Type: 
  Country: None (occurrence: None)
  Receive Date: 20100709
  Receipt Date: 20100628
  Transmission Date: 20110219
  Serious: Yes (Other)
  Sender: FDA-Public Use
  Company Number: AUR-APL-2010-01650

PATIENT
  Age: 48 Year
  Sex: Female

DRUGS (2)
  1. AMOXICILLIN [Suspect]
     Dosage: 250 MG, ORAL
     Route: 048
     Dates: start: 20100504, end: 20100506
  2. CLENIL INHALER (BECLOMETHASONE) [Concomitant]

REACTIONS (5)
  - DRUG HYPERSENSITIVITY [None]
  - DYSPEPSIA [None]
  - PRURITUS [None]
  - RASH MACULAR [None]
  - SEASONAL ALLERGY [None]
